FAERS Safety Report 8772340 (Version 1)
Quarter: 2012Q4

REPORT INFORMATION
  Report Type: 
  Country: US (occurrence: US)
  Receive Date: 20120906
  Receipt Date: 20120906
  Transmission Date: 20130627
  Serious: No
  Sender: FDA-Public Use
  Company Number: US-009507513-2012SP018154

PATIENT

DRUGS (1)
  1. IMPLANON [Suspect]
     Indication: CONTRACEPTION
     Dosage: 68 mg, UNK
     Route: 059
     Dates: start: 20110923, end: 20120229

REACTIONS (2)
  - Pregnancy with implant contraceptive [Recovered/Resolved]
  - Inappropriate schedule of drug administration [Recovered/Resolved]
